FAERS Safety Report 13600342 (Version 6)
Quarter: 2019Q2

REPORT INFORMATION
  Report Type: Spontaneous
  Country: US (occurrence: US)
  Receive Date: 20170601
  Receipt Date: 20190626
  Transmission Date: 20190711
  Serious: Yes (Other)
  Sender: FDA-Public Use
  Company Number: US-PFIZER INC-2017236372

PATIENT
  Age: 74 Year
  Sex: Female
  Weight: 77.11 kg

DRUGS (20)
  1. IPRATROPIUM BROMIDE/ALBUTEROL SULFATE [Concomitant]
     Active Substance: ALBUTEROL SULFATE\IPRATROPIUM BROMIDE
     Dosage: UNK, 4X/DAY (0.5-2.5 (3) MG/3ML SOLUTION 3 ML IN NEBULIZER INHALATION EVERY  6 HRS)
     Route: 055
  2. FUROSEMIDE. [Concomitant]
     Active Substance: FUROSEMIDE
     Dosage: 40 MG, 1X/DAY
     Route: 048
  3. KLOR-CON M20 [Concomitant]
     Active Substance: POTASSIUM CHLORIDE
     Dosage: 20 MEQ, 1X/DAY(1 TABLET WITH FOOD)
     Route: 048
  4. LYRICA [Suspect]
     Active Substance: PREGABALIN
     Indication: NEUROPATHY PERIPHERAL
     Dosage: 50 MG, TWICE A DAY
     Dates: start: 20170522
  5. VENTOLIN HFA [Concomitant]
     Active Substance: ALBUTEROL SULFATE
     Dosage: UNK, AS NEEDED (90  MCG/ ACT AEROSOL SOLUTION 2 PUFFS AS NEEDED INHALATION EVERY 6 HRS)
     Route: 055
  6. LYRICA [Suspect]
     Active Substance: PREGABALIN
     Indication: FIBROMYALGIA
     Dosage: 2 DF, TWICE A DAY
     Route: 048
  7. DUONEB [Concomitant]
     Active Substance: ALBUTEROL SULFATE\IPRATROPIUM BROMIDE
     Dosage: UNK, 2-3 TIMES A DAY
  8. DORZOLAMIDE HCL TIMOLOL MALEATE [Concomitant]
     Active Substance: DORZOLAMIDE HYDROCHLORIDE\TIMOLOL MALEATE
     Indication: EYE DISORDER
     Dosage: 1 GTT, 2X/DAY
     Route: 047
  9. LYRICA [Suspect]
     Active Substance: PREGABALIN
     Dosage: 100 MG, 3X/DAY
  10. VITAMIN D [COLECALCIFEROL] [Concomitant]
     Active Substance: CHOLECALCIFEROL
     Dosage: 2000 IU, 1X/DAY
     Route: 048
  11. LASIX [Concomitant]
     Active Substance: FUROSEMIDE
     Dosage: UNK
  12. BUDESONIDE. [Concomitant]
     Active Substance: BUDESONIDE
     Dosage: 2 ML, 2X/DAY
     Route: 055
  13. MONTELUKAST SODIUM. [Concomitant]
     Active Substance: MONTELUKAST SODIUM
     Indication: ASTHMA
     Dosage: 10 MG, 1X/DAY
  14. BRIMONIDINE TARTRATE. [Concomitant]
     Active Substance: BRIMONIDINE TARTRATE
     Indication: EYE DISORDER
     Dosage: 1 GTT, 3X/DAY
     Route: 047
  15. LATANOPROST. [Concomitant]
     Active Substance: LATANOPROST
     Dosage: 1 GTT, 1X/DAY
     Route: 047
  16. DIVALPROEX SODIUM. [Concomitant]
     Active Substance: DIVALPROEX SODIUM
     Dosage: 750 MG, DAILY (1 TAB ORALLY ONE IN A.M. + TWO IN P.M)
     Route: 048
  17. COLCHICINE. [Concomitant]
     Active Substance: COLCHICINE
     Dosage: 0.6 MG, 1X/DAY
     Route: 048
  18. LYRICA [Suspect]
     Active Substance: PREGABALIN
     Indication: PAIN
     Dosage: 150 MG, DAILY(ONE CAPSULE IN THE MORNING AND TWO CAPSULES IN THE EVENING)
  19. QVAR [Concomitant]
     Active Substance: BECLOMETHASONE DIPROPIONATE
     Dosage: UNK UNK, 2X/DAY(2 PUFFS TWICE A DAY)
     Route: 055
  20. OMEPRAZOLE. [Concomitant]
     Active Substance: OMEPRAZOLE
     Indication: ABDOMINAL DISCOMFORT
     Dosage: UNK

REACTIONS (6)
  - Skin laceration [Recovered/Resolved]
  - Visual impairment [Unknown]
  - Pain [Recovered/Resolved]
  - Body height decreased [Unknown]
  - Wound infection [Recovering/Resolving]
  - Intentional product use issue [Unknown]

NARRATIVE: CASE EVENT DATE: 20170522
